FAERS Safety Report 6286221-4 (Version None)
Quarter: 2009Q3

REPORT INFORMATION
  Report Type: 
  Country: None (occurrence: None)
  Receive Date: 20090716
  Receipt Date: 20081028
  Transmission Date: 20100115
  Serious: Yes (Other)
  Sender: FDA-Public Use
  Company Number: 2007BI009690

PATIENT
  Age: 51 Year
  Sex: Female

DRUGS (4)
  1. AVONEX [Suspect]
     Indication: MULTIPLE SCLEROSIS
     Dosage: 30 UG;QW;IM
     Route: 030
     Dates: start: 20011112
  2. PAIN PILLS (CON.) [Concomitant]
  3. HORMONE REPLACEMENT [Concomitant]
  4. PREV MEDS [Concomitant]

REACTIONS (2)
  - CONVULSION [None]
  - MYALGIA [None]
